FAERS Safety Report 10183397 (Version 1)
Quarter: 2014Q2

REPORT INFORMATION
  Report Type: Spontaneous
  Country: CH (occurrence: CH)
  Receive Date: 20140520
  Receipt Date: 20140520
  Transmission Date: 20141212
  Serious: Yes (Life-Threatening, Hospitalization)
  Sender: FDA-Public Use
  Company Number: CH-ELI_LILLY_AND_COMPANY-CH201405004635

PATIENT
  Age: 63 Year
  Sex: Female

DRUGS (4)
  1. CYMBALTA [Suspect]
     Indication: DEPRESSION
     Dosage: 30 MG, TID
     Route: 048
  2. PICOPREP [Interacting]
     Indication: COLONOSCOPY
     Dosage: 1 DF, UNK
     Route: 048
     Dates: start: 20140504, end: 20140505
  3. PRONTOLAX /00064401/ [Interacting]
     Indication: COLONOSCOPY
     Dosage: 5 MG, UNK
     Route: 048
     Dates: start: 20140504, end: 20140505
  4. LEXOTANIL [Concomitant]
     Indication: DEPRESSION
     Dosage: UNK UNK, PRN
     Route: 048

REACTIONS (7)
  - Altered state of consciousness [Recovered/Resolved]
  - Hyponatraemia [Recovered/Resolved]
  - Pyrexia [Unknown]
  - Disorientation [Unknown]
  - Diarrhoea [Unknown]
  - Vomiting [Unknown]
  - Drug interaction [Recovered/Resolved]
